FAERS Safety Report 5527006-3 (Version None)
Quarter: 2007Q4

REPORT INFORMATION
  Report Type: 
  Country: None (occurrence: None)
  Receive Date: 20071127
  Receipt Date: 20071113
  Transmission Date: 20080405
  Serious: Yes (Hospitalization)
  Sender: FDA-Public Use
  Company Number: ES-RANBAXY-2007RR-11447

PATIENT

DRUGS (5)
  1. TOPIRAMATE [Suspect]
     Indication: OBSESSIVE-COMPULSIVE DISORDER
  2. CLOMIPRAMINE HCL [Concomitant]
  3. ARIPIPRAZOLE [Concomitant]
  4. BIPERIDEN HYDROCHLORIDE TAB [Concomitant]
  5. TRIFLUOPERAZINE [Concomitant]

REACTIONS (1)
  - HEAT STROKE [None]
